FAERS Safety Report 6400878-6 (Version None)
Quarter: 2009Q4

REPORT INFORMATION
  Report Type: 
  Country: None (occurrence: None)
  Receive Date: 20091009
  Receipt Date: 20090927
  Transmission Date: 20100525
  Serious: Yes (Hospitalization)
  Sender: FDA-Public Use
  Company Number: 231344J09USA

PATIENT
  Age: 17 Year
  Sex: Male

DRUGS (1)
  1. REBIF [Suspect]
     Indication: OFF LABEL USE
     Dosage: 44 MCG, 3 IN 1 WEEKS, SUBCUTANEOUS
     Route: 058
     Dates: start: 20090513, end: 20090101

REACTIONS (3)
  - ECONOMIC PROBLEM [None]
  - OFF LABEL USE [None]
  - OPTIC NEURITIS [None]
